FAERS Safety Report 19116702 (Version 1)
Quarter: 2021Q2

REPORT INFORMATION
  Report Type: Report from Study
  Country: US (occurrence: US)
  Receive Date: 20210409
  Receipt Date: 20210409
  Transmission Date: 20210717
  Serious: No
  Sender: FDA-Public Use
  Company Number: NVSC2021US076939

PATIENT
  Sex: Female

DRUGS (1)
  1. COSENTYX [Suspect]
     Active Substance: SECUKINUMAB
     Indication: PSORIASIS
     Dosage: 300 MG, QMO (BENEATH THE SKIN, USUALLY VIA INJECTION)
     Route: 058
     Dates: start: 202002

REACTIONS (8)
  - Vomiting [Unknown]
  - Diarrhoea [Unknown]
  - Cough [Recovered/Resolved]
  - Nausea [Unknown]
  - Rhinorrhoea [Unknown]
  - Abdominal pain upper [Recovered/Resolved]
  - Scar [Recovering/Resolving]
  - Oropharyngeal discomfort [Unknown]
